FAERS Safety Report 10142275 (Version 1)
Quarter: 2014Q2

REPORT INFORMATION
  Report Type: Spontaneous
  Country: US (occurrence: US)
  Receive Date: 20140429
  Receipt Date: 20140429
  Transmission Date: 20141212
  Serious: Yes (Other)
  Sender: FDA-Public Use
  Company Number: US-JNJFOC-20140418836

PATIENT
  Age: 40 Year
  Sex: Female

DRUGS (4)
  1. NICODERM CQ 21MG [Suspect]
     Route: 062
  2. NICODERM CQ 21MG [Suspect]
     Indication: SMOKING CESSATION THERAPY
     Route: 062
     Dates: start: 201402
  3. NICODERM CQ 14 MG [Suspect]
     Route: 062
  4. NICODERM CQ 14 MG [Suspect]
     Indication: PRODUCT USED FOR UNKNOWN INDICATION
     Route: 062

REACTIONS (15)
  - Application site infection [Not Recovered/Not Resolved]
  - Infection [Unknown]
  - Application site scar [Unknown]
  - Pain [Unknown]
  - Skin ulcer [Unknown]
  - Acne [Unknown]
  - Rash pustular [Unknown]
  - Condition aggravated [Unknown]
  - Wound secretion [Unknown]
  - Application site pain [Unknown]
  - Application site reaction [Unknown]
  - Skin lesion [Unknown]
  - Application site erythema [Unknown]
  - Application site pruritus [Unknown]
  - Product quality issue [Unknown]
